FAERS Safety Report 23991931 (Version 2)
Quarter: 2024Q2

REPORT INFORMATION
  Report Type: Spontaneous
  Country: JP (occurrence: JP)
  Receive Date: 20240620
  Receipt Date: 20240624
  Transmission Date: 20240715
  Serious: Yes (Hospitalization, Other)
  Sender: FDA-Public Use
  Company Number: JP-GSKNCCC-Case-01959403_AE-82553

PATIENT

DRUGS (6)
  1. SHINGRIX [Suspect]
     Active Substance: RECOMBINANT VARICELLA ZOSTER VIRUS (VZV) GLYCOPROTEIN E
     Indication: Antiviral prophylaxis
     Dosage: .5 ML
     Route: 030
     Dates: start: 20231205
  2. VALTREX [Suspect]
     Active Substance: VALACYCLOVIR HYDROCHLORIDE
     Indication: Facial paralysis
     Dosage: 1000 MG, QD
  3. SHINGRIX [Concomitant]
     Active Substance: RECOMBINANT VARICELLA ZOSTER VIRUS (VZV) GLYCOPROTEIN E
     Indication: Antiviral prophylaxis
     Dates: start: 20230930
  4. MINOCYCLINE HYDROCHLORIDE [Concomitant]
     Active Substance: MINOCYCLINE HYDROCHLORIDE
     Indication: Staphylococcal infection
     Dosage: 100 MG, BID
     Route: 048
     Dates: start: 20240520, end: 20240523
  5. CEFACLOR [Concomitant]
     Active Substance: CEFACLOR
     Indication: Cellulitis
     Dosage: 1 DF, TID
     Route: 048
     Dates: start: 20240514, end: 20240519
  6. CEFACLOR [Concomitant]
     Active Substance: CEFACLOR
     Dosage: 2 DF, TID
     Dates: start: 20240524, end: 20240524

REACTIONS (18)
  - Facial paralysis [Recovering/Resolving]
  - Bell^s palsy [Unknown]
  - Peripheral paralysis [Unknown]
  - Ophthalmoplegia [Unknown]
  - Oedema peripheral [Not Recovered/Not Resolved]
  - Feeling hot [Recovered/Resolved]
  - Panniculitis [Not Recovered/Not Resolved]
  - Pain [Not Recovered/Not Resolved]
  - Pyrexia [Recovered/Resolved]
  - Hyperthermia [Recovered/Resolved]
  - Lagophthalmos [Recovering/Resolving]
  - Scratch [Recovering/Resolving]
  - Skin papilloma [Recovering/Resolving]
  - Arthralgia [Not Recovered/Not Resolved]
  - Cellulitis [Not Recovered/Not Resolved]
  - Tenderness [Not Recovered/Not Resolved]
  - Staphylococcal infection [Unknown]
  - Product use in unapproved indication [Unknown]

NARRATIVE: CASE EVENT DATE: 20231205
